FAERS Safety Report 20707310 (Version 2)
Quarter: 2022Q2

REPORT INFORMATION
  Report Type: Report from Study
  Country: IT (occurrence: IT)
  Receive Date: 20220413
  Receipt Date: 20220427
  Transmission Date: 20220721
  Serious: Yes (Hospitalization)
  Sender: FDA-Public Use
  Company Number: IT-ROCHE-2952017

PATIENT
  Age: 45 Year
  Sex: Female
  Weight: 65 kg

DRUGS (5)
  1. TRASTUZUMAB [Suspect]
     Active Substance: TRASTUZUMAB
     Indication: HER2 positive breast cancer
     Dosage: 6 MILLIGRAM/KILOGRAM, MOST RECENT DOSE OF TRASTUZUMAB 390 MG PRIOR TO SAE : 03/SEP/2021
     Route: 041
     Dates: start: 20210212
  2. ATEZOLIZUMAB [Suspect]
     Active Substance: ATEZOLIZUMAB
     Indication: HER2 positive breast cancer
     Dosage: 1200 MILLIGRAM, MOST RECENT DOSE OF ATEZOLIZUMAB BEFORE SAE : 03/SEP/2021
     Route: 041
     Dates: start: 20201127, end: 20210903
  3. PERTUZUMAB [Suspect]
     Active Substance: PERTUZUMAB
     Indication: HER2 positive breast cancer
     Dosage: 420 MILLIGRAM, MOST RECENT DOSE OF DRUG PRIOR TO SAE : 03/SEP//2021MOST RECENT DOSE
     Route: 042
  4. PERTUZUMAB [Suspect]
     Active Substance: PERTUZUMAB
     Dosage: 840 MILLIGRAM, MOST RECENT DOSE OF DRUG PRIOR TO SAE : 03/SEP//2021MOST RECENT DOSE
     Route: 042
     Dates: start: 20210212, end: 20211015
  5. INSULINE LISPRO [Concomitant]
     Indication: Steroid diabetes
     Dosage: UNK
     Dates: start: 20211026

REACTIONS (1)
  - Immune-mediated hepatitis [Recovered/Resolved]

NARRATIVE: CASE EVENT DATE: 20210923
